FAERS Safety Report 5473703-8 (Version None)
Quarter: 2007Q4

REPORT INFORMATION
  Report Type: 
  Country: None (occurrence: None)
  Receive Date: 20071001
  Receipt Date: 20060626
  Transmission Date: 20080405
  Serious: Yes (Other)
  Sender: FDA-Public Use
  Company Number: US-PFIZER INC-2007039854

PATIENT
  Sex: Male

DRUGS (4)
  1. NEURONTIN [Suspect]
  2. GABAPENTIN [Suspect]
  3. OXYCONTIN [Concomitant]
  4. CHEMOTHERAPY NOS [Concomitant]

REACTIONS (2)
  - DRUG EFFECT DECREASED [None]
  - RESPIRATORY RATE DECREASED [None]
